FAERS Safety Report 16357549 (Version 1)
Quarter: 2019Q2

REPORT INFORMATION
  Report Type: Spontaneous
  Country: DE (occurrence: DE)
  Receive Date: 20190527
  Receipt Date: 20190527
  Transmission Date: 20190711
  Serious: Yes (Other)
  Sender: FDA-Public Use
  Company Number: DE-AMGEN-DEUSP2019081246

PATIENT
  Age: 74 Year
  Sex: Male

DRUGS (3)
  1. ZOLEDRONIC ACID [Suspect]
     Active Substance: ZOLEDRONIC ACID
     Indication: BONE LESION
     Dosage: 4 MILLIGRAM, CYCLICAL
     Route: 042
     Dates: start: 2016, end: 201904
  2. XGEVA [Suspect]
     Active Substance: DENOSUMAB
     Indication: PLASMA CELL MYELOMA
     Dosage: UNK, CYCLICAL
     Route: 065
  3. ZOLEDRONIC ACID [Suspect]
     Active Substance: ZOLEDRONIC ACID
     Indication: PLASMA CELL MYELOMA

REACTIONS (4)
  - Medical device pain [Not Recovered/Not Resolved]
  - Gingival pain [Recovering/Resolving]
  - Toothache [Not Recovered/Not Resolved]
  - Gingival swelling [Recovering/Resolving]

NARRATIVE: CASE EVENT DATE: 20190301
